FAERS Safety Report 15548882 (Version 1)
Quarter: 2018Q4

REPORT INFORMATION
  Report Type: Spontaneous
  Country: US (occurrence: US)
  Receive Date: 20181025
  Receipt Date: 20181025
  Transmission Date: 20190205
  Serious: No
  Sender: FDA-Public Use
  Company Number: US-TEVA-2018-US-890470

PATIENT
  Age: 35 Year
  Sex: Female

DRUGS (2)
  1. ARMOUR THYROID [Suspect]
     Active Substance: THYROID, PORCINE
     Indication: THYROID DISORDER
     Route: 065
  2. PROVIGIL [Suspect]
     Active Substance: MODAFINIL
     Indication: SHIFT WORK DISORDER
     Dosage: 200 MILLIGRAM DAILY;
     Route: 065
     Dates: start: 2012

REACTIONS (1)
  - Maternal exposure during pregnancy [Unknown]
